FAERS Safety Report 8528960-8 (Version None)
Quarter: 2012Q3

REPORT INFORMATION
  Report Type: 
  Country: None (occurrence: None)
  Receive Date: 20120723
  Receipt Date: 20120719
  Transmission Date: 20120928
  Serious: Yes (Other)
  Sender: FDA-Public Use
  Company Number: US-PFIZER INC-2012175889

PATIENT
  Sex: Female
  Weight: 74.83 kg

DRUGS (3)
  1. REMIFEMIN [Concomitant]
     Indication: HOT FLUSH
     Dosage: UNK, 2X/DAY
  2. CHANTIX [Suspect]
     Dosage: UNK
     Dates: start: 20120601, end: 20120701
  3. CHANTIX [Suspect]
     Indication: SMOKING CESSATION THERAPY
     Dosage: 0.5 MG, 1X/DAY
     Dates: start: 20120601, end: 20120601

REACTIONS (3)
  - CRYING [None]
  - FEELING ABNORMAL [None]
  - DEPRESSION [None]
